FAERS Safety Report 7917157-8 (Version None)
Quarter: 2011Q4

REPORT INFORMATION
  Report Type: 
  Country: None (occurrence: None)
  Receive Date: 20111116
  Receipt Date: 20111104
  Transmission Date: 20120403
  Serious: Yes (Hospitalization, Other)
  Sender: FDA-Public Use
  Company Number: DE-ELI_LILLY_AND_COMPANY-DE201109008603

PATIENT
  Age: 78 Year
  Sex: Female

DRUGS (3)
  1. FORTEO [Suspect]
     Indication: OSTEOPOROSIS
     Dosage: UNK, QD
     Route: 058
     Dates: start: 20110901, end: 20111001
  2. PALLADONE [Concomitant]
  3. OMEPRAZOLE [Concomitant]

REACTIONS (8)
  - VOMITING [None]
  - SEPSIS [None]
  - APATHY [None]
  - DECREASED APPETITE [None]
  - NAUSEA [None]
  - INTERVERTEBRAL DISC PROTRUSION [None]
  - HAEMATEMESIS [None]
  - MEMORY IMPAIRMENT [None]
